FAERS Safety Report 5381094-6 (Version None)
Quarter: 2007Q3

REPORT INFORMATION
  Report Type: 
  Country: None (occurrence: None)
  Receive Date: 20070706
  Receipt Date: 20070625
  Transmission Date: 20080115
  Serious: Yes (Other)
  Sender: FDA-Public Use
  Company Number: US-SHR-US-2007-021874

PATIENT
  Age: 25 Year
  Sex: Female
  Weight: 56.689 kg

DRUGS (5)
  1. BETASERON [Suspect]
     Indication: RELAPSING-REMITTING MULTIPLE SCLEROSIS
     Dosage: 8 MIU, EVERY 2D
     Route: 058
     Dates: start: 20070208
  2. PAXIL [Concomitant]
     Indication: ANXIETY
     Dosage: 40 MG, 1X/DAY
     Dates: start: 20070201
  3. CLONAZEPAM [Concomitant]
     Indication: ANXIETY
     Dosage: .5 MG, AS REQ'D, ONCE IN A WHILE
     Dates: end: 20070201
  4. EXCEDRIN [Concomitant]
     Indication: HEADACHE
     Dosage: 500 MG, ONCE IN A WHILE
  5. PRILOSEC [Concomitant]
     Dosage: 20 MG, AS REQ'D
     Dates: start: 20070301

REACTIONS (1)
  - CONVULSION [None]
